FAERS Safety Report 8302524 (Version 2)
Quarter: 2012Q4

REPORT INFORMATION
  Report Type: Report from Study
  Country: DE (occurrence: DE)
  Receive Date: 20111220
  Receipt Date: 20121109
  Transmission Date: 20130627
  Serious: Yes (Hospitalization, Other)
  Sender: FDA-Public Use
  Company Number: DE-ROCHE-1022193

PATIENT
  Age: 68 Year
  Sex: Female
  Weight: 67 kg

DRUGS (7)
  1. TOCILIZUMAB [Suspect]
     Indication: RHEUMATOID ARTHRITIS
     Dosage: most recent dose prior to SAE 07/Nov/2011
     Route: 042
     Dates: start: 20110302
  2. TOCILIZUMAB [Suspect]
     Route: 042
     Dates: start: 20110302
  3. PREDNISOLONE [Concomitant]
     Indication: RHEUMATOID ARTHRITIS
     Dosage: Most recent dose 29/Nov/2011
     Route: 048
     Dates: start: 20030201
  4. PREDNISOLONE [Concomitant]
     Route: 048
     Dates: start: 2003
  5. DICLOFENAC [Concomitant]
     Indication: RHEUMATOID ARTHRITIS
     Dosage: Most recent dose 29/Nov/2011
     Route: 065
     Dates: start: 20020201
  6. ALENDRONATE [Concomitant]
     Indication: OSTEOPOROSIS
     Dosage: Most recent dose 27/Nov/2011
     Route: 048
     Dates: start: 20110301
  7. CHOLECALCIFEROL [Concomitant]
     Indication: OSTEOPOROSIS
     Dosage: Most recent dose 20/Nov/2011
     Route: 048
     Dates: start: 20110301

REACTIONS (2)
  - Osteoarthritis [Recovered/Resolved]
  - Arterial haemorrhage [Recovered/Resolved]
